FAERS Safety Report 7260541 (Version 11)
Quarter: 2014Q3

REPORT INFORMATION
  Report Type: Spontaneous
  Country: GB (occurrence: GB)
  Receive Date: 20100129
  Receipt Date: 20140821
  Transmission Date: 20150326
  Serious: Yes (Life-Threatening, Hospitalization, Other)
  Sender: FDA-Public Use
  Company Number: GB-ROCHE-672926

PATIENT
  Sex: Female

DRUGS (1)
  1. TAMIFLU [Suspect]
     Active Substance: OSELTAMIVIR PHOSPHATE
     Indication: H1N1 INFLUENZA
     Dosage: RECEIVED 3 OUT OF 10 TABLETS
     Route: 065

REACTIONS (27)
  - Toxic epidermal necrolysis [Unknown]
  - Cervix disorder [Unknown]
  - Entropion [Not Recovered/Not Resolved]
  - Pigmentation disorder [Unknown]
  - Pain [Unknown]
  - Stevens-Johnson syndrome [Unknown]
  - Scarlet fever [Unknown]
  - General physical health deterioration [Unknown]
  - Scar [Unknown]
  - Tongue discolouration [Unknown]
  - Skin exfoliation [Unknown]
  - Body temperature increased [Unknown]
  - Rash [Unknown]
  - Insomnia [Not Recovered/Not Resolved]
  - Eye infection [Unknown]
  - Ear pain [Unknown]
  - Swollen tongue [Unknown]
  - Blister [Not Recovered/Not Resolved]
  - Blindness [Not Recovered/Not Resolved]
  - Post-traumatic stress disorder [Unknown]
  - Loss of consciousness [Unknown]
  - Drug prescribing error [Unknown]
  - Injury corneal [Unknown]
  - Coma [Unknown]
  - Uterine injury [Unknown]
  - Weight decreased [Unknown]
  - Hypersensitivity [Unknown]
